FAERS Safety Report 22370697 (Version 1)
Quarter: 2023Q2

REPORT INFORMATION
  Report Type: Spontaneous
  Country: CN (occurrence: CN)
  Receive Date: 20230526
  Receipt Date: 20230526
  Transmission Date: 20230721
  Serious: Yes (Other)
  Sender: FDA-Public Use
  Company Number: None

PATIENT
  Age: 58 Year
  Sex: Female
  Weight: 62.7 kg

DRUGS (12)
  1. CYCLOPHOSPHAMIDE [Suspect]
     Active Substance: CYCLOPHOSPHAMIDE
     Indication: Invasive ductal breast carcinoma
     Dosage: 0.8 G, QD, DILUTED WITH 50 ML OF 0.9% SODIUM CHLORIDE INJECTION, FIRST CHEMOTHERAPY OF TAC REGIMEN
     Route: 041
     Dates: start: 20230516, end: 20230516
  2. CYCLOPHOSPHAMIDE [Suspect]
     Active Substance: CYCLOPHOSPHAMIDE
     Indication: Triple negative breast cancer
  3. CYCLOPHOSPHAMIDE [Suspect]
     Active Substance: CYCLOPHOSPHAMIDE
     Indication: Chemotherapy
  4. SODIUM CHLORIDE [Suspect]
     Active Substance: SODIUM CHLORIDE
     Indication: Medication dilution
     Dosage: 50 ML, QD, USED TO DILUTE 0.8 G OF CYCLOPHOSPHAMIDE (STRENGTH: 0.9%, DOSAGE FORM: INJECTION)
     Route: 041
     Dates: start: 20230516, end: 20230516
  5. SODIUM CHLORIDE [Suspect]
     Active Substance: SODIUM CHLORIDE
     Dosage: 250 ML, QD, USED TO DILUTE 120 MG OF DOCETAXEL (STRENGTH: 0.9%, DOSAGE FORM: INJECTION)
     Route: 041
     Dates: start: 20230516, end: 20230516
  6. SODIUM CHLORIDE [Suspect]
     Active Substance: SODIUM CHLORIDE
     Dosage: 100 ML, QD, USED TO DILUTE 80 MG OF DOXORUBICIN HYDROCHLORIDE (STRENGTH: 0.9%, DOSAGE FORM: INJECTIO
     Route: 041
     Dates: start: 20230516, end: 20230516
  7. DOCETAXEL [Suspect]
     Active Substance: DOCETAXEL
     Indication: Invasive ductal breast carcinoma
     Dosage: 120 MG, QD, DILUTED WITH 250 ML OF 0.9% SODIUM CHLORIDE INJECTION, FIRST CHEMOTHERAPY OF TAC REGIMEN
     Route: 041
     Dates: start: 20230516, end: 20230516
  8. DOCETAXEL [Suspect]
     Active Substance: DOCETAXEL
     Indication: Triple negative breast cancer
  9. DOCETAXEL [Suspect]
     Active Substance: DOCETAXEL
     Indication: Chemotherapy
  10. DOXORUBICIN HYDROCHLORIDE [Suspect]
     Active Substance: DOXORUBICIN HYDROCHLORIDE
     Indication: Invasive ductal breast carcinoma
     Dosage: 80 MG, QD, DILUTED WITH 100 ML OF 0.9% SODIUM CHLORIDE INJECTION, FIRST CHEMOTHERAPY OF TAC REGIMEN
     Route: 041
     Dates: start: 20230516, end: 20230516
  11. DOXORUBICIN HYDROCHLORIDE [Suspect]
     Active Substance: DOXORUBICIN HYDROCHLORIDE
     Indication: Triple negative breast cancer
  12. DOXORUBICIN HYDROCHLORIDE [Suspect]
     Active Substance: DOXORUBICIN HYDROCHLORIDE
     Indication: Chemotherapy

REACTIONS (2)
  - White blood cell count increased [Recovering/Resolving]
  - Neutrophil count increased [Recovering/Resolving]

NARRATIVE: CASE EVENT DATE: 20230517
